FAERS Safety Report 25154447 (Version 5)
Quarter: 2025Q3

REPORT INFORMATION
  Report Type: Spontaneous
  Country: CA (occurrence: CA)
  Receive Date: 20250403
  Receipt Date: 20250915
  Transmission Date: 20251021
  Serious: Yes (Other)
  Sender: CELLTRION
  Company Number: CA-PFIZER INC-PV202400069136

PATIENT

DRUGS (5)
  1. INFLECTRA [Suspect]
     Active Substance: INFLIXIMAB-DYYB
     Indication: Colitis ulcerative
     Dates: start: 20220524
  2. INFLECTRA [Suspect]
     Active Substance: INFLIXIMAB-DYYB
  3. INFLECTRA [Suspect]
     Active Substance: INFLIXIMAB-DYYB
  4. INFLECTRA [Suspect]
     Active Substance: INFLIXIMAB-DYYB
  5. INFLECTRA [Suspect]
     Active Substance: INFLIXIMAB-DYYB
     Dates: start: 20250613, end: 20250613

REACTIONS (4)
  - Large intestine polyp [Recovered/Resolved]
  - Nasal septal operation [Recovered/Resolved]
  - Sciatica [Not Recovered/Not Resolved]
  - Epistaxis [Not Recovered/Not Resolved]

NARRATIVE: CASE EVENT DATE: 20240101
